FAERS Safety Report 19362154 (Version 1)
Quarter: 2021Q2

REPORT INFORMATION
  Report Type: Spontaneous
  Country: US (occurrence: US)
  Receive Date: 20210603
  Receipt Date: 20210603
  Transmission Date: 20210717
  Serious: Yes (Other)
  Sender: FDA-Public Use
  Company Number: US-APOLLO PHARMACEUTICALS-2021-APO-000010

PATIENT
  Age: 34 Year
  Sex: Male

DRUGS (1)
  1. TRANEXAMIC ACID. [Suspect]
     Active Substance: TRANEXAMIC ACID
     Indication: HAEMOPTYSIS
     Dosage: 500 MG, TID

REACTIONS (2)
  - Off label use [Recovered/Resolved]
  - Dyspnoea [Recovered/Resolved]
